FAERS Safety Report 4467871-4 (Version None)
Quarter: 2004Q4

REPORT INFORMATION
  Report Type: 
  Country: None (occurrence: None)
  Receive Date: 20041007
  Receipt Date: 20040927
  Transmission Date: 20050328
  Serious: Yes (Other)
  Sender: FDA-Public Use
  Company Number: GB-JNJFOC-20040908809

PATIENT
  Age: 38 Year
  Sex: Female
  Weight: 55 kg

DRUGS (10)
  1. MICRONOR [Suspect]
     Indication: CONTRACEPTION
     Route: 049
     Dates: start: 20040622, end: 20040828
  2. COD LIVER OIL [Concomitant]
     Route: 049
  3. MULTI-VITAMIN [Concomitant]
  4. MULTI-VITAMIN [Concomitant]
  5. MULTI-VITAMIN [Concomitant]
  6. MULTI-VITAMIN [Concomitant]
  7. MULTI-VITAMIN [Concomitant]
  8. MULTI-VITAMIN [Concomitant]
  9. MULTI-VITAMIN [Concomitant]
  10. MULTI-VITAMIN [Concomitant]

REACTIONS (2)
  - JOINT SWELLING [None]
  - MUSCULOSKELETAL STIFFNESS [None]
